FAERS Safety Report 9774256 (Version 2)
Quarter: 2014Q2

REPORT INFORMATION
  Report Type: Spontaneous
  Country: FR (occurrence: FR)
  Receive Date: 20131220
  Receipt Date: 20140530
  Transmission Date: 20141212
  Serious: Yes (Hospitalization, Other)
  Sender: FDA-Public Use
  Company Number: FR-JNJFOC-20131210133

PATIENT
  Sex: Female

DRUGS (2)
  1. XARELTO [Suspect]
     Indication: EMBOLISM VENOUS
     Route: 048
     Dates: start: 20131115, end: 20131124
  2. XARELTO [Suspect]
     Indication: VENOUS THROMBOSIS
     Route: 048
     Dates: start: 20131115, end: 20131124

REACTIONS (6)
  - Haemorrhage [Recovered/Resolved]
  - Blood urine present [Recovered/Resolved]
  - Constipation [Recovered/Resolved]
  - Haematoma [Recovered/Resolved]
  - Abdominal pain [Recovered/Resolved]
  - Haematuria [Unknown]
